FAERS Safety Report 4501825-4 (Version None)
Quarter: 2004Q4

REPORT INFORMATION
  Report Type: 
  Country: None (occurrence: None)
  Receive Date: 20041115
  Receipt Date: 20041115
  Transmission Date: 20050328
  Serious: Yes (Life-Threatening, Hospitalization)
  Sender: FDA-Public Use
  Company Number: None

PATIENT
  Age: 63 Year
  Sex: Male
  Weight: 84.4 kg

DRUGS (13)
  1. SIMVASTATIN [Suspect]
  2. DOCUSATE [Concomitant]
  3. DORZOLAMIDE/TIMOLOL [Concomitant]
  4. INSULIN 70/30 NPH/REG [Concomitant]
  5. TERAZOSIN HCL [Concomitant]
  6. LACTULOSE [Concomitant]
  7. ACETAMINOPHEN [Concomitant]
  8. ASPIRIN [Concomitant]
  9. METFORMIN [Concomitant]
  10. METOCLOPRAMIDE [Concomitant]
  11. METOPROLOL [Concomitant]
  12. OMEPRAZOLE [Concomitant]
  13. RISPERIDONE [Concomitant]

REACTIONS (2)
  - BLOOD CREATINE PHOSPHOKINASE INCREASED [None]
  - HEPATOTOXICITY [None]
